FAERS Safety Report 8094993 (Version 6)
Quarter: 2013Q1

REPORT INFORMATION
  Report Type: Spontaneous
  Country: US (occurrence: US)
  Receive Date: 20110817
  Receipt Date: 20130102
  Transmission Date: 20140127
  Serious: Yes (Other)
  Sender: FDA-Public Use
  Company Number: US-ASTRAZENECA-2010SE24155

PATIENT
  Age: 50 Year
  Sex: Male
  Weight: 90.7 kg

DRUGS (29)
  1. SEROQUEL [Suspect]
     Indication: BIPOLAR DISORDER
     Route: 048
     Dates: end: 201004
  2. SEROQUEL [Suspect]
     Indication: SLEEP DISORDER
     Route: 048
     Dates: end: 201004
  3. SEROQUEL [Suspect]
     Indication: ANXIETY
     Route: 048
     Dates: end: 201004
  4. SEROQUEL [Suspect]
     Indication: BIPOLAR DISORDER
     Route: 048
     Dates: start: 201004
  5. SEROQUEL [Suspect]
     Indication: SLEEP DISORDER
     Route: 048
     Dates: start: 201004
  6. SEROQUEL [Suspect]
     Indication: ANXIETY
     Route: 048
     Dates: start: 201004
  7. SEROQUEL [Suspect]
     Indication: BIPOLAR DISORDER
     Route: 048
  8. SEROQUEL [Suspect]
     Indication: SLEEP DISORDER
     Route: 048
  9. SEROQUEL [Suspect]
     Indication: ANXIETY
     Route: 048
  10. SEROQUEL [Suspect]
     Indication: BIPOLAR DISORDER
     Route: 048
  11. SEROQUEL [Suspect]
     Indication: SLEEP DISORDER
     Route: 048
  12. SEROQUEL [Suspect]
     Indication: ANXIETY
     Route: 048
  13. SEROQUEL [Suspect]
     Indication: BIPOLAR DISORDER
     Route: 048
  14. SEROQUEL [Suspect]
     Indication: SLEEP DISORDER
     Route: 048
  15. SEROQUEL [Suspect]
     Indication: ANXIETY
     Route: 048
  16. SEROQUEL [Suspect]
     Indication: BIPOLAR DISORDER
     Route: 048
  17. SEROQUEL [Suspect]
     Indication: SLEEP DISORDER
     Route: 048
  18. SEROQUEL [Suspect]
     Indication: ANXIETY
     Route: 048
  19. SEROQUEL [Suspect]
     Indication: BIPOLAR DISORDER
     Route: 048
     Dates: start: 2011
  20. SEROQUEL [Suspect]
     Indication: SLEEP DISORDER
     Route: 048
     Dates: start: 2011
  21. SEROQUEL [Suspect]
     Indication: ANXIETY
     Route: 048
     Dates: start: 2011
  22. REMERON [Concomitant]
     Route: 065
  23. XANAX [Concomitant]
     Indication: ANXIETY
     Route: 048
  24. XANAX [Concomitant]
     Indication: DEPRESSION
     Route: 048
  25. COREG [Concomitant]
     Indication: HYPERTENSION
     Dosage: BID
     Route: 048
  26. CYMBALTA [Concomitant]
     Route: 065
  27. OXYCONTIN [Concomitant]
     Indication: BACK PAIN
     Route: 048
  28. OXYCODONE [Concomitant]
     Indication: BACK PAIN
     Route: 048
  29. UNKNOWN CHOLESTEROL MEDICATION [Concomitant]
     Indication: BLOOD CHOLESTEROL INCREASED
     Dosage: DAILY
     Route: 048

REACTIONS (18)
  - Ear injury [Unknown]
  - Hearing impaired [Unknown]
  - Gun shot wound [Unknown]
  - Limb crushing injury [Unknown]
  - Back disorder [Unknown]
  - Musculoskeletal discomfort [Unknown]
  - Insomnia [Unknown]
  - Anxiety [Unknown]
  - Depression [Unknown]
  - Panic attack [Unknown]
  - Pharyngeal oedema [Unknown]
  - Nasal congestion [Unknown]
  - Upper respiratory tract infection [Unknown]
  - Viral infection [Unknown]
  - Back pain [Unknown]
  - Dyspnoea [Unknown]
  - Off label use [Unknown]
  - Drug dose omission [Unknown]
